FAERS Safety Report 7792010-1 (Version None)
Quarter: 2011Q3

REPORT INFORMATION
  Report Type: 
  Country: None (occurrence: None)
  Receive Date: 20110929
  Receipt Date: 20110920
  Transmission Date: 20111222
  Serious: Yes (Other)
  Sender: FDA-Public Use
  Company Number: ACO_26739_2011

PATIENT
  Age: 51 Year
  Sex: Female
  Weight: 58 kg

DRUGS (4)
  1. ERGOCALCIFEROL [Concomitant]
  2. AMPYRA [Suspect]
     Indication: MULTIPLE SCLEROSIS
     Dosage: 10 MG, BID, ORAL
     Route: 048
     Dates: start: 20110815, end: 20110916
  3. GILENYA [Concomitant]
  4. FISH OIL (FISH OIL) [Concomitant]

REACTIONS (7)
  - CONVULSION [None]
  - LOSS OF CONSCIOUSNESS [None]
  - FALL [None]
  - AMNESIA [None]
  - THERAPEUTIC RESPONSE UNEXPECTED [None]
  - AGGRESSION [None]
  - DISORIENTATION [None]
